FAERS Safety Report 8273272-3 (Version None)
Quarter: 2012Q2

REPORT INFORMATION
  Report Type: 
  Country: None (occurrence: None)
  Receive Date: 20120411
  Receipt Date: 20120406
  Transmission Date: 20120825
  Serious: Yes (Other)
  Sender: FDA-Public Use
  Company Number: US-PFIZER INC-2012062235

PATIENT
  Sex: Female
  Weight: 95.238 kg

DRUGS (9)
  1. AMLODIPINE [Concomitant]
     Indication: HYPERTENSION
     Dosage: UNK,DAILY
  2. SYNTHROID [Concomitant]
     Indication: THYROID THERAPY
     Dosage: UNK, DAILY
  3. RAMIPRIL [Concomitant]
     Indication: HYPERTENSION
     Dosage: UNK, 2X/DAY
  4. DOXAZOSIN [Concomitant]
     Indication: HYPERTENSION
     Dosage: UNK,DAILY
  5. TOVIAZ [Suspect]
     Indication: URINARY INCONTINENCE
     Dosage: 4 MG, DAILY
     Dates: start: 20120302, end: 20120307
  6. ACETYLSALICYLIC ACID [Concomitant]
     Indication: CARDIAC DISORDER
     Dosage: 81 MG, DAILY
  7. WARFARIN SODIUM [Suspect]
     Indication: ARRHYTHMIA
     Dosage: UNK
     Dates: start: 20110101, end: 20110801
  8. WARFARIN SODIUM [Suspect]
     Indication: ANTICOAGULANT THERAPY
  9. HYDROCODONE [Concomitant]
     Indication: ARTHRALGIA
     Dosage: UNK, DAILY

REACTIONS (4)
  - VISION BLURRED [None]
  - EPISTAXIS [None]
  - CARDIAC DISORDER [None]
  - DRUG INEFFECTIVE [None]
